FAERS Safety Report 16391974 (Version 1)
Quarter: 2019Q2

REPORT INFORMATION
  Report Type: Spontaneous
  Country: US (occurrence: US)
  Receive Date: 20190605
  Receipt Date: 20190605
  Transmission Date: 20190711
  Serious: No
  Sender: FDA-Public Use
  Company Number: US-ROCHE-2227491

PATIENT
  Sex: Female

DRUGS (7)
  1. ELIQUIS [Concomitant]
     Active Substance: APIXABAN
  2. DULOXETINE. [Concomitant]
     Active Substance: DULOXETINE
  3. APIXABAN [Concomitant]
     Active Substance: APIXABAN
  4. ROPINIROLE. [Concomitant]
     Active Substance: ROPINIROLE
  5. TIZANIDINE. [Concomitant]
     Active Substance: TIZANIDINE
  6. ROSUVASTATIN. [Concomitant]
     Active Substance: ROSUVASTATIN
  7. OCREVUS [Suspect]
     Active Substance: OCRELIZUMAB
     Indication: MULTIPLE SCLEROSIS
     Route: 042
     Dates: start: 20181204

REACTIONS (2)
  - Petechiae [Unknown]
  - Pruritus [Unknown]
